FAERS Safety Report 21815833 (Version 1)
Quarter: 2023Q1

REPORT INFORMATION
  Report Type: Spontaneous
  Country: US (occurrence: None)
  Receive Date: 20230103
  Receipt Date: 20230103
  Transmission Date: 20230418
  Serious: No
  Sender: FDA-Public Use
  Company Number: None

PATIENT
  Age: 63 Year
  Sex: Female

DRUGS (1)
  1. LUMAKRAS [Suspect]
     Active Substance: SOTORASIB
     Dosage: FREQUENCY : DAILY;?
     Route: 048

REACTIONS (3)
  - Chest pain [None]
  - Dyspnoea [None]
  - Hepatic enzyme increased [None]

NARRATIVE: CASE EVENT DATE: 20221224
